FAERS Safety Report 23169238 (Version 1)
Quarter: 2023Q4

REPORT INFORMATION
  Report Type: Report from Study
  Country: CO (occurrence: CO)
  Receive Date: 20231110
  Receipt Date: 20231110
  Transmission Date: 20240110
  Serious: Yes (Hospitalization)
  Sender: FDA-Public Use
  Company Number: CO-JNJFOC-20231109573

PATIENT
  Age: 59 Year
  Sex: Male
  Weight: 74 kg

DRUGS (3)
  1. SIMPONI [Suspect]
     Active Substance: GOLIMUMAB
     Indication: Ankylosing spondylitis
     Dosage: 16-OCT-2023
     Route: 040
     Dates: start: 20220824
  2. PENICILLIN G [Concomitant]
     Active Substance: PENICILLIN G
  3. CEFTAZIDIME [Concomitant]
     Active Substance: CEFTAZIDIME

REACTIONS (1)
  - Pneumonia [Not Recovered/Not Resolved]

NARRATIVE: CASE EVENT DATE: 20231028
